FAERS Safety Report 10751381 (Version 3)
Quarter: 2015Q3

REPORT INFORMATION
  Report Type: Not Available
  Country: FR (occurrence: FR)
  Receive Date: 20150130
  Receipt Date: 20150805
  Transmission Date: 20151125
  Serious: Yes (Hospitalization)
  Sender: FDA-Public Use
  Company Number: FR-MUNDIPHARMA DS AND PHARMACOVIGILANCE-GBR-2015-0025111

PATIENT
  Age: 85 Year
  Sex: Female

DRUGS (13)
  1. LYRICA [Interacting]
     Active Substance: PREGABALIN
     Indication: NEURALGIA
     Dosage: 25 MG, BID
     Route: 048
     Dates: start: 2014, end: 20141129
  2. LEVOTHYROX [Concomitant]
     Active Substance: LEVOTHYROXINE
     Dosage: 75 MCG, UNK
  3. SPASFON                            /00765801/ [Concomitant]
     Active Substance: PHLOROGLUCINOL\1,3,5-TRIMETHOXYBENZENE
  4. OXYNORM, GELULE [Suspect]
     Active Substance: OXYCODONE HYDROCHLORIDE
     Indication: NEURALGIA
     Dosage: UNK
     Route: 048
     Dates: start: 2014, end: 20141129
  5. LASILIX                            /00032601/ [Concomitant]
     Active Substance: FUROSEMIDE
     Dosage: 500 MG, UNK
  6. LETROZOLE. [Concomitant]
     Active Substance: LETROZOLE
     Dosage: 2.5 UNK, UNK
  7. MOTILIUM [Concomitant]
     Active Substance: DOMPERIDONE
     Dosage: 10 MG, UNK
  8. CARDENSIEL [Concomitant]
     Active Substance: BISOPROLOL FUMARATE
     Dosage: 1.25 UNK, UNK
  9. SPECIAFOLDINE [Concomitant]
     Active Substance: FOLIC ACID
  10. NOVOMIX [Concomitant]
     Active Substance: INSULIN ASPART
  11. OXYCONTIN [Interacting]
     Active Substance: OXYCODONE HYDROCHLORIDE
     Indication: NEURALGIA
     Dosage: 5 MG, DAILY
     Route: 048
     Dates: start: 2014, end: 20141129
  12. KARDEGIC [Concomitant]
     Active Substance: ASPIRIN LYSINE
     Dosage: 75 MG, UNK
  13. INEXIUM                            /01479302/ [Concomitant]
     Active Substance: ESOMEPRAZOLE MAGNESIUM
     Dosage: 40 MG, UNK

REACTIONS (4)
  - Hallucination, visual [Recovered/Resolved]
  - Abasia [Recovering/Resolving]
  - Confusional state [Recovered/Resolved]
  - Somnolence [Recovered/Resolved]

NARRATIVE: CASE EVENT DATE: 201411
